FAERS Safety Report 23798964 (Version 1)
Quarter: 2024Q2

REPORT INFORMATION
  Report Type: Spontaneous
  Country: US (occurrence: None)
  Receive Date: 20240427
  Receipt Date: 20240427
  Transmission Date: 20240716
  Serious: Yes (Hospitalization)
  Sender: FDA-Public Use
  Company Number: None

PATIENT
  Age: 70 Year
  Sex: Male
  Weight: 92 kg

DRUGS (2)
  1. APIXABAN [Suspect]
     Active Substance: APIXABAN
     Indication: Atrial fibrillation
     Dosage: FREQUENCY : TWICE A DAY;?
     Route: 048
     Dates: start: 20230308, end: 20230317
  2. APIXABAN [Suspect]
     Active Substance: APIXABAN
     Indication: Mitral valve disease

REACTIONS (12)
  - Gastrointestinal haemorrhage [None]
  - Arthralgia [None]
  - Fatigue [None]
  - Asthenia [None]
  - Refusal of treatment by patient [None]
  - Melaena [None]
  - Mental status changes [None]
  - Blood pressure decreased [None]
  - Tachycardia [None]
  - Haemoglobin decreased [None]
  - Therapy cessation [None]
  - Duodenal ulcer [None]
